FAERS Safety Report 6636510-6 (Version None)
Quarter: 2010Q1

REPORT INFORMATION
  Report Type: 
  Country: None (occurrence: None)
  Receive Date: 20100310
  Receipt Date: 20100222
  Transmission Date: 20100710
  Serious: Yes (Other)
  Sender: FDA-Public Use
  Company Number: AUR-APL-2010-00546

PATIENT
  Age: 45 Day
  Sex: Female
  Weight: 2.1 kg

DRUGS (11)
  1. ZIDOVUDINE [Suspect]
     Indication: HIV INFECTION
     Dosage: TRANSPLACENTAL
     Route: 064
  2. ZIDOVUDINE [Suspect]
     Indication: PROPHYLAXIS AGAINST HIV INFECTION
     Dosage: ORAL
     Route: 048
  3. ZIDOVUDINE [Suspect]
     Indication: HIV INFECTION
     Dosage: 360 MG/M2/DAY-BID
  4. LAMIVUDINE [Suspect]
     Indication: HIV INFECTION
     Dosage: 8 MG/KG/DAY-BID
  5. NEVIRAPINE [Suspect]
     Indication: HIV INFECTION
     Dosage: 300 MG/M2/DAY-BID
  6. COTRIMOXAZOLE [TRIMETHOPRIM/SULFAMETHOXAZOLE] [Concomitant]
  7. ISONIAZID [Concomitant]
  8. RIFAMPICIN [Concomitant]
  9. STREPTOMYCIN [Concomitant]
  10. ETHAMBUTOL HYDROCHLORIDE [Concomitant]
  11. CIPROFLOXACIN [Concomitant]

REACTIONS (14)
  - ALANINE AMINOTRANSFERASE INCREASED [None]
  - ASPARTATE AMINOTRANSFERASE INCREASED [None]
  - CAESAREAN SECTION [None]
  - DEVELOPMENTAL DELAY [None]
  - FAILURE TO THRIVE [None]
  - HEPATITIS [None]
  - HEPATOSPLENOMEGALY [None]
  - LACTIC ACIDOSIS [None]
  - LYMPHADENOPATHY [None]
  - MATERNAL DRUGS AFFECTING FOETUS [None]
  - MENTAL RETARDATION [None]
  - METABOLIC ACIDOSIS [None]
  - MUSCLE SPASTICITY [None]
  - QUADRIPARESIS [None]
